FAERS Safety Report 5367653-5 (Version None)
Quarter: 2007Q2

REPORT INFORMATION
  Report Type: 
  Country: None (occurrence: None)
  Receive Date: 20070622
  Receipt Date: 20070219
  Transmission Date: 20071010
  Serious: No
  Sender: FDA-Public Use
  Company Number: US-ASTRAZENECA-2007UW03179

PATIENT
  Age: 66 Year
  Sex: Female
  Weight: 72.6 kg

DRUGS (18)
  1. PULMICORT RESPULES [Suspect]
     Indication: ASTHMA
     Route: 055
     Dates: start: 20070216
  2. LEVAQUIN [Concomitant]
  3. EVISTA [Concomitant]
  4. MICARDIS [Concomitant]
  5. LIPITOR [Concomitant]
  6. COMBIVENT [Concomitant]
  7. INTAL [Concomitant]
  8. ADVAIR DISKUS 100/50 [Concomitant]
  9. SINGULAIR [Concomitant]
  10. MUCINEX [Concomitant]
  11. NEURONTIN [Concomitant]
  12. CENTRUM SILVER [Concomitant]
  13. MULTIVITAMIN [Concomitant]
  14. FISH OIL [Concomitant]
  15. OMEGA-3 [Concomitant]
  16. VITAMIN E [Concomitant]
  17. ELECTROLYTE [Concomitant]
  18. STAMINA [Concomitant]

REACTIONS (2)
  - DIZZINESS [None]
  - NAUSEA [None]
